FAERS Safety Report 10409809 (Version 2)
Quarter: 2014Q3

REPORT INFORMATION
  Report Type: Spontaneous
  Country: US (occurrence: US)
  Receive Date: 20140826
  Receipt Date: 20140826
  Transmission Date: 20150326
  Serious: Yes (Hospitalization, Other)
  Sender: FDA-Public Use
  Company Number: US-009507513-2009-196667-NL

PATIENT
  Sex: Female
  Weight: 52.16 kg

DRUGS (2)
  1. NUVARING [Suspect]
     Active Substance: ETHINYL ESTRADIOL\ETONOGESTREL
     Indication: CONTRACEPTION
     Dosage: CONTINUING: NO
     Dates: start: 20040506, end: 20061013
  2. NUVARING [Suspect]
     Active Substance: ETHINYL ESTRADIOL\ETONOGESTREL
     Indication: LIBIDO DISORDER

REACTIONS (10)
  - Cerebral venous thrombosis [Recovered/Resolved]
  - Thalamic infarction [Unknown]
  - Dehydration [Unknown]
  - Gastroenteritis [Unknown]
  - Off label use [Unknown]
  - Factor V deficiency [Unknown]
  - Subarachnoid haemorrhage [Recovering/Resolving]
  - Deep vein thrombosis [Unknown]
  - Thrombosis [Unknown]
  - Weight decreased [Unknown]

NARRATIVE: CASE EVENT DATE: 2006
